FAERS Safety Report 24433182 (Version 1)
Quarter: 2024Q4

REPORT INFORMATION
  Report Type: Spontaneous
  Country: GB (occurrence: GB)
  Receive Date: 20241014
  Receipt Date: 20241014
  Transmission Date: 20250114
  Serious: Yes (Other)
  Sender: SANDOZ
  Company Number: None

PATIENT

DRUGS (2)
  1. ESTRADIOL [Suspect]
     Active Substance: ESTRADIOL
     Dosage: 25 MCG/24 HRS
     Route: 065
  2. ESTRADIOL [Suspect]
     Active Substance: ESTRADIOL
     Indication: Product used for unknown indication
     Dosage: 50 MCG/24 HRS
     Route: 065

REACTIONS (4)
  - Suicidal ideation [Unknown]
  - Symptom recurrence [Unknown]
  - Oestradiol decreased [Unknown]
  - Product adhesion issue [Unknown]
